FAERS Safety Report 18078287 (Version 1)
Quarter: 2020Q3

REPORT INFORMATION
  Report Type: Spontaneous
  Country: US (occurrence: US)
  Receive Date: 20200727
  Receipt Date: 20200727
  Transmission Date: 20201103
  Serious: Yes (Other)
  Sender: FDA-Public Use
  Company Number: None

PATIENT
  Age: 91 Year
  Sex: Female
  Weight: 70 kg

DRUGS (7)
  1. LOVENOX [Concomitant]
     Active Substance: ENOXAPARIN SODIUM
     Dates: start: 20200719
  2. AZITHROMYCIN ANHYDROUS. [Concomitant]
     Active Substance: AZITHROMYCIN ANHYDROUS
     Dates: start: 20200718
  3. REMDESIVIR. [Suspect]
     Active Substance: REMDESIVIR
     Indication: COVID-19 PNEUMONIA
     Route: 041
     Dates: start: 20200721, end: 20200724
  4. IRBESARTAN. [Concomitant]
     Active Substance: IRBESARTAN
     Dates: start: 20200718
  5. DEXAMETHAMETHSONE [Concomitant]
     Dates: start: 20200718
  6. GLIMEPIRIDE. [Concomitant]
     Active Substance: GLIMEPIRIDE
     Dates: start: 20200718
  7. IVERMECTIN. [Concomitant]
     Active Substance: IVERMECTIN
     Dates: start: 20200718

REACTIONS (3)
  - Blood creatinine increased [None]
  - Renal failure [None]
  - Glomerular filtration rate decreased [None]

NARRATIVE: CASE EVENT DATE: 20200724
